FAERS Safety Report 21999803 (Version 2)
Quarter: 2023Q4

REPORT INFORMATION
  Report Type: Spontaneous
  Country: CN (occurrence: CN)
  Receive Date: 20230216
  Receipt Date: 20231006
  Transmission Date: 20240109
  Serious: Yes (Life-Threatening, Other)
  Sender: FDA-Public Use
  Company Number: CN-BAYER-2023A016912

PATIENT
  Age: 57 Year
  Sex: Male
  Weight: 74 kg

DRUGS (1)
  1. ULTRAVIST [Suspect]
     Active Substance: IOPROMIDE
     Indication: Computerised tomogram heart
     Dosage: 85 ML, ONCE
     Route: 042
     Dates: start: 20230207, end: 20230207

REACTIONS (9)
  - Flushing [Recovering/Resolving]
  - Chest discomfort [Recovering/Resolving]
  - Pharyngeal hypoaesthesia [Recovering/Resolving]
  - Throat tightness [Recovering/Resolving]
  - Nausea [None]
  - Vomiting [Recovered/Resolved]
  - Blood pressure increased [Recovering/Resolving]
  - Oxygen saturation decreased [None]
  - Rash [Recovering/Resolving]

NARRATIVE: CASE EVENT DATE: 20230207
